FAERS Safety Report 7686817-9 (Version None)
Quarter: 2011Q3

REPORT INFORMATION
  Report Type: 
  Country: None (occurrence: None)
  Receive Date: 20110816
  Receipt Date: 20110804
  Transmission Date: 20111222
  Serious: Yes (Other)
  Sender: FDA-Public Use
  Company Number: US-UCBSA-027200

PATIENT
  Sex: Female

DRUGS (10)
  1. CIMZIA [Suspect]
     Indication: CROHN'S DISEASE
     Route: 058
     Dates: start: 20100723
  2. FOLIC ACID [Concomitant]
  3. METHOTREXATE [Concomitant]
  4. FLAGYL [Concomitant]
  5. CELEXA [Concomitant]
  6. ROXICODONE [Concomitant]
  7. CIMZIA [Suspect]
     Route: 058
     Dates: start: 20110527
  8. CIMZIA [Suspect]
     Dosage: LAST DOSE RECEIVED ON 04-AUG-2011
     Route: 058
  9. PEPCID [Concomitant]
  10. COLACE [Concomitant]

REACTIONS (8)
  - FAECAL VOLUME INCREASED [None]
  - FATIGUE [None]
  - NAUSEA [None]
  - ASTHENIA [None]
  - DRY SKIN [None]
  - RECTAL ABSCESS [None]
  - PRURITUS [None]
  - ORAL CANDIDIASIS [None]
